FAERS Safety Report 17910848 (Version 2)
Quarter: 2020Q3

REPORT INFORMATION
  Report Type: Report from Study
  Country: KR (occurrence: KR)
  Receive Date: 20200618
  Receipt Date: 20200702
  Transmission Date: 20201103
  Serious: Yes (Hospitalization)
  Sender: FDA-Public Use
  Company Number: KR-ROCHE-2623584

PATIENT
  Age: 75 Year
  Sex: Male

DRUGS (7)
  1. CRAVIT [Concomitant]
     Active Substance: LEVOFLOXACIN
     Route: 042
     Dates: start: 20200317, end: 20200417
  2. ESOMEPRAZOLE. [Concomitant]
     Active Substance: ESOMEPRAZOLE MAGNESIUM
     Route: 042
     Dates: start: 20200317, end: 20200317
  3. OXYCODONE [Concomitant]
     Active Substance: OXYCODONE
     Dosage: AS NEEDED
     Route: 048
     Dates: start: 20200302
  4. PANTOLOC [PANTOPRAZOLE] [Concomitant]
     Active Substance: PANTOPRAZOLE SODIUM
     Route: 055
     Dates: start: 20200318, end: 20200319
  5. ATEZOLIZUMAB. [Suspect]
     Active Substance: ATEZOLIZUMAB
     Indication: TRANSITIONAL CELL CARCINOMA
     Route: 041
     Dates: start: 20200302, end: 20200302
  6. TARGIN [Concomitant]
     Active Substance: NALOXONE HYDROCHLORIDE\OXYCODONE HYDROCHLORIDE
     Route: 048
     Dates: start: 20200302
  7. PRECEDEX [Concomitant]
     Active Substance: DEXMEDETOMIDINE HYDROCHLORIDE
     Route: 048
     Dates: start: 20200406, end: 20200415

REACTIONS (3)
  - Pneumonia aspiration [Recovered/Resolved]
  - Acute kidney injury [Recovered/Resolved]
  - Encephalopathy [Recovered/Resolved]

NARRATIVE: CASE EVENT DATE: 20200312
